FAERS Safety Report 8173280-7 (Version None)
Quarter: 2012Q1

REPORT INFORMATION
  Report Type: 
  Country: None (occurrence: None)
  Receive Date: 20120223
  Receipt Date: 20111213
  Transmission Date: 20120608
  Serious: Yes (Other)
  Sender: FDA-Public Use
  Company Number: 2011SP045079

PATIENT
  Age: 55 Year
  Sex: Female

DRUGS (3)
  1. VICTRELIS [Suspect]
     Indication: HEPATITIS C
     Dates: start: 20110807
  2. PEG-INTRON [Suspect]
     Indication: HEPATITIS C
     Dates: start: 20110709
  3. RIBAVIRIN [Suspect]
     Indication: HEPATITIS C
     Dates: start: 20110710

REACTIONS (8)
  - MALAISE [None]
  - DEPRESSION [None]
  - DYSPNOEA [None]
  - CONFUSIONAL STATE [None]
  - HYPOTHYROIDISM [None]
  - ASTHENIA [None]
  - NERVOUSNESS [None]
  - ANAEMIA [None]
